FAERS Safety Report 4383400-8 (Version None)
Quarter: 2004Q2

REPORT INFORMATION
  Report Type: 
  Country: None (occurrence: None)
  Receive Date: 20040623
  Receipt Date: 20040616
  Transmission Date: 20050107
  Serious: Yes (Death)
  Sender: FDA-Public Use
  Company Number: PHBS2004IT07927

PATIENT
  Age: 41 Year
  Sex: Male

DRUGS (9)
  1. CYCLOSPORINE [Suspect]
     Indication: STEM CELL TRANSPLANT
     Dosage: 2 MG/KG/D
     Route: 065
  2. CISPLATIN [Concomitant]
     Dosage: 100 MG/MS
  3. CYTARABINE [Concomitant]
     Dosage: 2000 MG/M2, Q12H
  4. DEXAMETHASONE [Concomitant]
     Dosage: 40 MG/D
  5. THIOTEPA [Concomitant]
     Dosage: 10 MG/KG/D
  6. FLUDARABINE PHOSPHATE [Concomitant]
     Dosage: 30 MG/M2/D
  7. CYCLOPHOSPHAMIDE [Concomitant]
     Dosage: 30 MG/KG/D
  8. METHOTREXATE [Concomitant]
     Dosage: 10 MG/MS
  9. METHOTREXATE [Concomitant]
     Dosage: 8 MG/MS

REACTIONS (2)
  - ENTEROBACTER SEPSIS [None]
  - GRAFT VERSUS HOST DISEASE [None]
